FAERS Safety Report 10440212 (Version 2)
Quarter: 2014Q3

REPORT INFORMATION
  Report Type: Spontaneous
  Country: US (occurrence: US)
  Receive Date: 20140908
  Receipt Date: 20140908
  Transmission Date: 20150326
  Serious: No
  Sender: FDA-Public Use
  Company Number: US-BRISTOL-MYERS SQUIBB COMPANY-20116984

PATIENT
  Age: 66 Year
  Sex: Female

DRUGS (10)
  1. LOSARTAN [Concomitant]
     Active Substance: LOSARTAN
  2. METOPROLOL [Concomitant]
     Active Substance: METOPROLOL
  3. CARBAMAZEPINE. [Concomitant]
     Active Substance: CARBAMAZEPINE
  4. BABY ASPIRIN [Concomitant]
     Active Substance: ASPIRIN
  5. XARELTO [Concomitant]
     Active Substance: RIVAROXABAN
  6. MULTIVITAMIN [Concomitant]
     Active Substance: VITAMINS
  7. ABILIFY [Suspect]
     Active Substance: ARIPIPRAZOLE
     Indication: MOOD SWINGS
     Route: 048
     Dates: end: 201309
  8. TEGRETOL [Concomitant]
     Active Substance: CARBAMAZEPINE
  9. SIMVASTATIN. [Concomitant]
     Active Substance: SIMVASTATIN
  10. LEVOTHYROXINE [Concomitant]
     Active Substance: LEVOTHYROXINE

REACTIONS (6)
  - Wrong technique in drug usage process [Not Recovered/Not Resolved]
  - Heart rate increased [Not Recovered/Not Resolved]
  - Hyperhidrosis [Unknown]
  - Meniscus injury [Not Recovered/Not Resolved]
  - Decreased appetite [Unknown]
  - Feeling abnormal [Unknown]
